FAERS Safety Report 9521195 (Version 1)
Quarter: 2013Q1

REPORT INFORMATION
  Report Type: Spontaneous
  Country: US (occurrence: None)
  Receive Date: 20130305
  Receipt Date: 20130305
  Transmission Date: 20140127
  Serious: Yes (Other)
  Sender: FDA-Public Use
  Company Number: 163-21880-12080148

PATIENT
  Age: 59 Year
  Sex: Female

DRUGS (8)
  1. REVLIMID [Suspect]
     Indication: PLASMA CELL MYELOMA
     Dosage: 01/12/2012 - TEMPORARILY INTERRUPTED
     Route: 048
     Dates: start: 20120112
  2. TRIBENZOR (TRIBENZOR) [Concomitant]
  3. VALACYCLOVIR (VALACICLOVIR HYDROCHLORIDE) [Concomitant]
  4. VITAMIN D3 (COLECALCIFEROL) [Concomitant]
  5. SULFAMETHOXAZOLE (SULFAMETHOXAZOLE) [Concomitant]
  6. COUMADIN (WARFARIN SODIUM) [Concomitant]
  7. ASPIRIN (ACETYLALICYLIC ACID) [Concomitant]
  8. PARADAXA (DABIGATRAN ETEXILATE MESILATE) [Concomitant]

REACTIONS (2)
  - Diverticulitis [None]
  - Infection [None]
